FAERS Safety Report 4853504-1 (Version None)
Quarter: 2005Q4

REPORT INFORMATION
  Report Type: 
  Country: None (occurrence: None)
  Receive Date: 20051214
  Receipt Date: 20051208
  Transmission Date: 20060501
  Serious: Yes (Hospitalization)
  Sender: FDA-Public Use
  Company Number: FR-BRISTOL-MYERS SQUIBB COMPANY-13209366

PATIENT
  Age: 63 Year
  Sex: Male
  Weight: 68 kg

DRUGS (3)
  1. SUSTIVA [Suspect]
     Indication: HIV INFECTION
     Route: 048
     Dates: start: 20030606, end: 20050901
  2. EPIVIR [Concomitant]
     Indication: HIV INFECTION
     Dates: start: 20030606
  3. VIREAD [Concomitant]
     Indication: HIV INFECTION
     Dates: start: 20030606

REACTIONS (1)
  - DISORIENTATION [None]
